FAERS Safety Report 23291199 (Version 2)
Quarter: 2024Q1

REPORT INFORMATION
  Report Type: Spontaneous
  Country: PL (occurrence: None)
  Receive Date: 20231213
  Receipt Date: 20240130
  Transmission Date: 20240409
  Serious: Yes (Hospitalization, Other)
  Sender: FDA-Public Use
  Company Number: 2023A280989

PATIENT
  Age: 21915 Day

DRUGS (2)
  1. DURVALUMAB [Suspect]
     Active Substance: DURVALUMAB
     Indication: Squamous cell carcinoma of lung
  2. PREDNISONE [Concomitant]
     Active Substance: PREDNISONE
     Indication: Product used for unknown indication

REACTIONS (13)
  - Pulmonary fibrosis [Unknown]
  - Bronchogram abnormal [Unknown]
  - Interstitial lung disease [Unknown]
  - Pulmonary mass [Unknown]
  - Lung opacity [Unknown]
  - Lymphadenopathy [Unknown]
  - Lung infiltration [Unknown]
  - Rales [Unknown]
  - Pleural effusion [Unknown]
  - Lung consolidation [Unknown]
  - Malignant neoplasm progression [Unknown]
  - Glossitis [Unknown]
  - Dyspnoea [Unknown]

NARRATIVE: CASE EVENT DATE: 20230303
